FAERS Safety Report 17040259 (Version 3)
Quarter: 2021Q4

REPORT INFORMATION
  Report Type: Spontaneous
  Country: DE (occurrence: DE)
  Receive Date: 20191116
  Receipt Date: 20211123
  Transmission Date: 20220303
  Serious: Yes (Life-Threatening, Hospitalization, Other)
  Sender: FDA-Public Use
  Company Number: DE-ACCORD-131478

PATIENT
  Sex: Female
  Weight: 84 kg

DRUGS (5)
  1. PEGFILGRASTIM [Suspect]
     Active Substance: PEGFILGRASTIM
     Indication: Product used for unknown indication
     Dosage: UNK
     Route: 065
  2. CYCLOPHOSPHAMIDE [Concomitant]
     Active Substance: CYCLOPHOSPHAMIDE
     Indication: Breast cancer
     Dosage: 450 MILLIGRAM/SQ. METER, QD (450 FROM 150 MG/M2)
     Route: 042
     Dates: start: 20190515, end: 20190515
  3. DEXAMETHASONE [Concomitant]
     Active Substance: DEXAMETHASONE
     Indication: Prophylaxis
     Dosage: 12 MILLIGRAM, QD
     Route: 042
     Dates: start: 20190515, end: 20190515
  4. MESNA [Concomitant]
     Active Substance: MESNA
     Dosage: 400 MILLIGRAM, QD
     Route: 042
     Dates: start: 20190515, end: 20190515
  5. EPIRUBICIN [Concomitant]
     Active Substance: EPIRUBICIN
     Indication: Breast cancer
     Dosage: 75 MILLIGRAM/SQ. METER, QD
     Route: 042
     Dates: start: 20190515, end: 20190515

REACTIONS (3)
  - Hepatic encephalopathy [Recovered/Resolved]
  - Ammonia increased [Recovered/Resolved]
  - Coma [Recovered/Resolved]

NARRATIVE: CASE EVENT DATE: 20190520
